FAERS Safety Report 4618555-0 (Version None)
Quarter: 2005Q1

REPORT INFORMATION
  Report Type: 
  Country: None (occurrence: None)
  Receive Date: 20050323
  Receipt Date: 20050310
  Transmission Date: 20050727
  Serious: Yes (Hospitalization)
  Sender: FDA-Public Use
  Company Number: 2005044441

PATIENT
  Sex: Female

DRUGS (2)
  1. ZELDOX (CAPSULES) (ZIPRASIDONE) [Suspect]
     Indication: SCHIZOPHRENIA
     Dosage: 40 MG (20 MG, 2 IN 1 D), ORAL
     Route: 048
  2. FLUSPIRILENE (FLUSPIRILENE) [Concomitant]

REACTIONS (1)
  - STATUS EPILEPTICUS [None]
